FAERS Safety Report 10190196 (Version 1)
Quarter: 2014Q2

REPORT INFORMATION
  Report Type: Spontaneous
  Country: US (occurrence: US)
  Receive Date: 20140522
  Receipt Date: 20140522
  Transmission Date: 20141212
  Serious: Yes (Hospitalization, Other)
  Sender: FDA-Public Use
  Company Number: US-ELI_LILLY_AND_COMPANY-US201405005142

PATIENT
  Sex: Male

DRUGS (2)
  1. ADCIRCA [Suspect]
     Indication: PULMONARY ARTERIAL HYPERTENSION
     Dosage: 40 MG, UNK
     Route: 065
  2. AMBRISENTAN [Suspect]
     Dosage: 10 MG, QD
     Dates: start: 20070716

REACTIONS (1)
  - Aneurysm [Recovered/Resolved]
